FAERS Safety Report 5930760-X (Version None)
Quarter: 2008Q4

REPORT INFORMATION
  Report Type: 
  Country: None (occurrence: None)
  Receive Date: 20081002
  Receipt Date: 20080229
  Transmission Date: 20090506
  Serious: Yes (Hospitalization, Other)
  Sender: FDA-Public Use
  Company Number: 2007-0013132

PATIENT
  Age: 51 Year
  Sex: Male
  Weight: 97.5234 kg

DRUGS (13)
  1. TRUVADA [Suspect]
     Indication: HIV INFECTION
     Dosage: 1 DOSAGE FORMS, 1 IN 1 D
     Dates: start: 20060101, end: 20070724
  2. KALETRA [Concomitant]
  3. LISINOPRIL [Concomitant]
  4. BACTRIM [Concomitant]
  5. TRIAMCINOLONE ACETONIDE [Concomitant]
  6. ZITHROMAX [Concomitant]
  7. NEURONTIN [Concomitant]
  8. IMMODIUM (LOPERAMIDE HYDROCHLORIDE) [Concomitant]
  9. TRICOR (ADENOSINE) [Concomitant]
  10. MECLIZINE [Concomitant]
  11. ASPIRIN [Concomitant]
  12. PRILOSEC [Concomitant]
  13. CLARITIN [Concomitant]

REACTIONS (1)
  - RENAL FAILURE ACUTE [None]
